FAERS Safety Report 21244579 (Version 1)
Quarter: 2022Q3

REPORT INFORMATION
  Report Type: Spontaneous
  Country: US (occurrence: US)
  Receive Date: 20220823
  Receipt Date: 20220823
  Transmission Date: 20221027
  Serious: No
  Sender: FDA-Public Use
  Company Number: US-PFIZER INC-PV202200047429

PATIENT
  Age: 23 Year
  Sex: Female

DRUGS (2)
  1. METHOTREXATE SODIUM [Suspect]
     Active Substance: METHOTREXATE SODIUM
     Dosage: UNK
  2. CYCLOSPORINE [Suspect]
     Active Substance: CYCLOSPORINE
     Dosage: UNK

REACTIONS (5)
  - Drug ineffective [Unknown]
  - Dermatitis atopic [Unknown]
  - Asthma [Unknown]
  - Pruritus [Unknown]
  - Circumstance or information capable of leading to medication error [Unknown]
